FAERS Safety Report 14930635 (Version 1)
Quarter: 2018Q2

REPORT INFORMATION
  Report Type: Spontaneous
  Country: US (occurrence: US)
  Receive Date: 20180523
  Receipt Date: 20180523
  Transmission Date: 20180711
  Serious: No
  Sender: FDA-Public Use
  Company Number: US-LEXICON PHARMACEUTICALS, INC-18-1606-00585

PATIENT
  Sex: Male

DRUGS (20)
  1. KLOR-CON [Concomitant]
     Active Substance: POTASSIUM CHLORIDE
  2. AMLODIPINE [Concomitant]
     Active Substance: AMLODIPINE BESYLATE
  3. TELOTRISTAT ETHYL [Suspect]
     Active Substance: TELOTRISTAT ETHYL
     Indication: CARCINOID SYNDROME
     Route: 048
     Dates: start: 20171005
  4. NIACIN. [Concomitant]
     Active Substance: NIACIN
  5. INDOMETHACIN. [Concomitant]
     Active Substance: INDOMETHACIN
  6. ALLOPURINOL. [Concomitant]
     Active Substance: ALLOPURINOL
  7. SERTRALINE [Concomitant]
     Active Substance: SERTRALINE HYDROCHLORIDE
  8. VITAMIN B12 [Concomitant]
     Active Substance: CYANOCOBALAMIN
  9. MAGNESIUM [Concomitant]
     Active Substance: MAGNESIUM
  10. OPIUMTIN [Concomitant]
  11. ROPINIROLE. [Concomitant]
     Active Substance: ROPINIROLE
  12. PAROXETINE. [Concomitant]
     Active Substance: PAROXETINE
  13. PREDNISOLONE. [Concomitant]
     Active Substance: PREDNISOLONE
  14. VOLTAREN [Concomitant]
     Active Substance: DICLOFENAC SODIUM
  15. OMEPRAZOLE. [Concomitant]
     Active Substance: OMEPRAZOLE
  16. TELOTRISTAT ETHYL [Suspect]
     Active Substance: TELOTRISTAT ETHYL
     Route: 048
  17. DICYCLOMINE [Concomitant]
     Active Substance: DICYCLOMINE HYDROCHLORIDE
  18. SANDOSTATIN [Concomitant]
     Active Substance: OCTREOTIDE ACETATE
  19. OCTREOTIDE ACETATE. [Concomitant]
     Active Substance: OCTREOTIDE ACETATE
  20. ASPIR-LOW [Concomitant]
     Active Substance: ASPIRIN

REACTIONS (3)
  - Flatulence [Unknown]
  - Abdominal discomfort [Unknown]
  - Abdominal pain upper [Unknown]
